FAERS Safety Report 7109863-2 (Version None)
Quarter: 2010Q4

REPORT INFORMATION
  Report Type: 
  Country: None (occurrence: None)
  Receive Date: 20101118
  Receipt Date: 20100928
  Transmission Date: 20110411
  Serious: Yes (Other)
  Sender: FDA-Public Use
  Company Number: RS-SANOFI-AVENTIS-2010SA069211

PATIENT
  Age: 49 Year
  Sex: Female

DRUGS (6)
  1. FLUDARA [Suspect]
     Dosage: DAYS 1-3 (FC REGIMEN)
     Route: 065
  2. CYCLOPHOSPHAMIDE [Concomitant]
     Dosage: ON DAY 1 (CHOP REGIMEN)
  3. CYCLOPHOSPHAMIDE [Concomitant]
     Dosage: DAYS 1-3 (FC REGIMEN)
  4. DOXORUBICIN HCL [Concomitant]
     Dosage: ON DAY 1 (CHOP REGIMEN)
     Route: 042
  5. VINCRISTINE [Concomitant]
     Dosage: ON DAY 1 (CHOP REGIMEN)
     Route: 042
  6. PREDNISONE [Concomitant]
     Dosage: DAYS 1-5 (CHOP REGIMEN)
     Route: 048

REACTIONS (1)
  - ACUTE MYELOID LEUKAEMIA [None]
